FAERS Safety Report 4679230-X (Version None)
Quarter: 2005Q2

REPORT INFORMATION
  Report Type: 
  Country: None (occurrence: None)
  Receive Date: 20050311
  Receipt Date: 20050311
  Transmission Date: 20051028
  Serious: Yes (Other)
  Sender: FDA-Public Use
  Company Number: None

PATIENT
  Sex: Female
  Weight: 136.0791 kg

DRUGS (3)
  1. GENERIC MIXED AMPHETAMINE SALTS [Suspect]
     Indication: ATTENTION DEFICIT/HYPERACTIVITY DISORDER
     Dosage: 30 MG AM NOON  BY MOUTH
     Route: 048
     Dates: start: 20040901, end: 20041001
  2. TEGRETOL [Concomitant]
  3. RISPERIDONE [Concomitant]

REACTIONS (2)
  - AGGRESSION [None]
  - THERAPEUTIC RESPONSE UNEXPECTED WITH DRUG SUBSTITUTION [None]
